FAERS Safety Report 11347340 (Version 3)
Quarter: 2015Q3

REPORT INFORMATION
  Report Type: Report from Study
  Country: US (occurrence: US)
  Receive Date: 20150806
  Receipt Date: 20150827
  Transmission Date: 20151125
  Serious: Yes (Hospitalization, Other)
  Sender: FDA-Public Use
  Company Number: US-GILEAD-2015-0166451

PATIENT
  Age: 65 Year
  Sex: Female

DRUGS (4)
  1. ORENITRAM [Concomitant]
     Active Substance: TREPROSTINIL
  2. ADCIRCA [Concomitant]
     Active Substance: TADALAFIL
  3. AMBRISENTAN [Suspect]
     Active Substance: AMBRISENTAN
     Indication: PRODUCT USED FOR UNKNOWN INDICATION
     Dosage: 10 MG, QD
     Route: 065
     Dates: start: 20120921
  4. REMODULIN [Concomitant]
     Active Substance: TREPROSTINIL

REACTIONS (11)
  - Respiratory distress [Unknown]
  - Blood pressure increased [Unknown]
  - Hypoxia [Unknown]
  - Diarrhoea [Unknown]
  - Abdominal distension [Unknown]
  - Chest pain [Unknown]
  - Cardiac failure congestive [Unknown]
  - Asthenia [Unknown]
  - Dyspnoea [Unknown]
  - Abdominal discomfort [Unknown]
  - Dizziness [Unknown]
